FAERS Safety Report 6437544-7 (Version None)
Quarter: 2009Q4

REPORT INFORMATION
  Report Type: 
  Country: None (occurrence: None)
  Receive Date: 20091109
  Receipt Date: 20091027
  Transmission Date: 20100525
  Serious: Yes (Other)
  Sender: FDA-Public Use
  Company Number: 2009AP004227

PATIENT
  Age: 67 Year
  Sex: Male

DRUGS (3)
  1. ALENDRONATE SODIUM [Suspect]
     Indication: SPINAL FRACTURE
     Dosage: PO
     Route: 048
     Dates: start: 20000101
  2. IBANDRONATE SODIUM (IBANDRONATE SODIUM) [Concomitant]
  3. ZOLEDRONIC ACID [Concomitant]

REACTIONS (3)
  - FEMUR FRACTURE [None]
  - IMPAIRED HEALING [None]
  - STRESS FRACTURE [None]
